FAERS Safety Report 5592666-8 (Version None)
Quarter: 2008Q1

REPORT INFORMATION
  Report Type: 
  Country: None (occurrence: None)
  Receive Date: 20080114
  Receipt Date: 20080110
  Transmission Date: 20080703
  Serious: Yes (Other)
  Sender: FDA-Public Use
  Company Number: 2007SP003355

PATIENT
  Age: 49 Year
  Sex: Male
  Weight: 96.6162 kg

DRUGS (5)
  1. ASMANEX TWISTHALER [Suspect]
     Indication: ASTHMA
     Dosage: 1 DF; QD; PO
     Route: 048
     Dates: start: 20050816, end: 20070221
  2. NASONEX (MOMETASONE FUROATE (NASAL) (CON.) [Concomitant]
  3. ATORVENT (CON.) [Concomitant]
  4. LORATADINE (CON.) [Concomitant]
  5. SINGULAIR (CON.) /01362601/ [Concomitant]

REACTIONS (2)
  - BLOOD PRESSURE FLUCTUATION [None]
  - VISUAL DISTURBANCE [None]
